FAERS Safety Report 15126321 (Version 2)
Quarter: 2018Q3

REPORT INFORMATION
  Report Type: Spontaneous
  Country: JP (occurrence: JP)
  Receive Date: 20180710
  Receipt Date: 20180803
  Transmission Date: 20181010
  Serious: No
  Sender: FDA-Public Use
  Company Number: JP-SA-2018SA162225

PATIENT
  Age: 7 Decade
  Sex: Female

DRUGS (1)
  1. KEVZARA [Suspect]
     Active Substance: SARILUMAB
     Indication: RHEUMATOID ARTHRITIS
     Dosage: 200 MG, QD
     Route: 058
     Dates: start: 20180314, end: 201806

REACTIONS (1)
  - Urinary incontinence [Not Recovered/Not Resolved]

NARRATIVE: CASE EVENT DATE: 20180606
